FAERS Safety Report 9958249 (Version 1)
Quarter: 2014Q1

REPORT INFORMATION
  Report Type: Spontaneous
  Country: PR (occurrence: PR)
  Receive Date: 20140304
  Receipt Date: 20140304
  Transmission Date: 20141002
  Serious: No
  Sender: FDA-Public Use
  Company Number: PR-ABBVIE-13P-131-1091784-00

PATIENT
  Sex: Female
  Weight: 98.97 kg

DRUGS (13)
  1. HUMIRA [Suspect]
     Indication: PSORIATIC ARTHROPATHY
     Route: 058
  2. ATENOLOL [Concomitant]
     Indication: HYPERTENSION
     Route: 048
  3. COZAAR [Concomitant]
     Indication: HYPERTENSION
     Route: 048
  4. NORVASC [Concomitant]
     Indication: HYPERTENSION
     Route: 048
  5. SIMVASTATIN [Concomitant]
     Indication: BLOOD CHOLESTEROL
     Route: 048
  6. NEURONTIN [Concomitant]
     Indication: PAIN
     Route: 048
  7. CYMBALTA [Concomitant]
     Indication: PAIN
     Route: 048
  8. METFORMIN [Concomitant]
     Indication: DIABETES MELLITUS
     Route: 048
  9. HUMOLIN N [Concomitant]
     Indication: DIABETES MELLITUS
     Route: 058
  10. HUMOLIN R [Concomitant]
     Indication: DIABETES MELLITUS
     Route: 058
  11. CLONOPIN [Concomitant]
     Indication: DEPRESSION
     Route: 048
  12. ZOLOFT [Concomitant]
     Indication: DEPRESSION
     Route: 048
  13. METHOTREXATE [Concomitant]
     Indication: PSORIATIC ARTHROPATHY
     Route: 048

REACTIONS (2)
  - Malaise [Unknown]
  - Psoriasis [Not Recovered/Not Resolved]
